FAERS Safety Report 5808196-1 (Version None)
Quarter: 2008Q3

REPORT INFORMATION
  Report Type: 
  Country: None (occurrence: None)
  Receive Date: 20080709
  Receipt Date: 20080623
  Transmission Date: 20090109
  Serious: Yes (Other)
  Sender: FDA-Public Use
  Company Number: B0415522A

PATIENT
  Age: 10 Year
  Sex: Female

DRUGS (1)
  1. DEXTRO AMPHETAMINE SULFATE TAB [Suspect]
     Indication: ATTENTION DEFICIT/HYPERACTIVITY DISORDER
     Dosage: 20 MG / PER DAY /

REACTIONS (13)
  - ANTINUCLEAR ANTIBODY POSITIVE [None]
  - CAPILLARY DISORDER [None]
  - CHILLBLAINS [None]
  - CONTUSION [None]
  - CUTANEOUS SARCOIDOSIS [None]
  - CYANOSIS [None]
  - ERYTHEMA [None]
  - PAIN [None]
  - PERIPHERAL COLDNESS [None]
  - PERIPHERAL VASCULAR DISORDER [None]
  - PRURITUS [None]
  - SKIN NECROSIS [None]
  - VASCULITIS NECROTISING [None]
